FAERS Safety Report 5764232-2 (Version None)
Quarter: 2008Q2

REPORT INFORMATION
  Report Type: 
  Country: None (occurrence: None)
  Receive Date: 20080610
  Receipt Date: 20080530
  Transmission Date: 20081010
  Serious: Yes (Death, Hospitalization)
  Sender: FDA-Public Use
  Company Number: TW-AMGEN-US285209

PATIENT
  Sex: Female

DRUGS (9)
  1. ENBREL [Suspect]
     Indication: RHEUMATOID ARTHRITIS
     Route: 058
     Dates: start: 20040629, end: 20070101
  2. ENBREL [Suspect]
     Dosage: UNKNOWN
     Dates: start: 20080101
  3. METHOTREXATE [Suspect]
     Dates: start: 20070518, end: 20080101
  4. METHOTREXATE [Suspect]
     Dates: start: 20080201
  5. METHOTREXATE [Suspect]
     Dosage: UNSPECIFIED
     Dates: end: 20080521
  6. SALAZOPYRIN [Concomitant]
     Indication: RHEUMATOID ARTHRITIS
     Route: 048
     Dates: start: 20070518
  7. PLAQUENIL [Concomitant]
     Indication: RHEUMATOID ARTHRITIS
     Dosage: UNKNOWN DOSE TWICE DAILY
  8. PLAQUENIL [Concomitant]
     Dates: start: 20070518, end: 20080526
  9. FELODIPINE [Concomitant]
     Route: 048
     Dates: start: 20070518, end: 20080526

REACTIONS (4)
  - HEPATIC ENCEPHALOPATHY [None]
  - HEPATIC FAILURE [None]
  - HEPATITIS B [None]
  - SEPTIC SHOCK [None]
